FAERS Safety Report 12892647 (Version 1)
Quarter: 2016Q4

REPORT INFORMATION
  Report Type: Spontaneous
  Country: US (occurrence: US)
  Receive Date: 20161028
  Receipt Date: 20161028
  Transmission Date: 20170207
  Serious: Yes (Hospitalization)
  Sender: FDA-Public Use
  Company Number: None

PATIENT
  Age: 74 Year
  Sex: Male
  Weight: 72 kg

DRUGS (12)
  1. AMIODARONE [Suspect]
     Active Substance: AMIODARONE
     Indication: VENTRICULAR TACHYCARDIA
     Dosage: AMIODARONE - DATES OF USE - CHRONIC WITH RECENT INCREASE
     Route: 048
  2. IUM [Concomitant]
  3. BUMEX [Concomitant]
     Active Substance: BUMETANIDE
  4. CLONAZEPAN [Concomitant]
     Active Substance: CLONAZEPAM
  5. ASA [Concomitant]
     Active Substance: ASPIRIN
  6. MEXITIL [Concomitant]
     Active Substance: MEXILETINE HYDROCHLORIDE
  7. AMIODARONE [Suspect]
     Active Substance: AMIODARONE
     Indication: ATRIAL FIBRILLATION
     Dosage: AMIODARONE - DATES OF USE - CHRONIC WITH RECENT INCREASE
     Route: 048
  8. ZESTRIL [Concomitant]
     Active Substance: LISINOPRIL
  9. ELIQUIS [Concomitant]
     Active Substance: APIXABAN
  10. COREG [Concomitant]
     Active Substance: CARVEDILOL
  11. CRESTOR [Concomitant]
     Active Substance: ROSUVASTATIN CALCIUM
  12. REMERON [Concomitant]
     Active Substance: MIRTAZAPINE

REACTIONS (4)
  - Interstitial lung disease [None]
  - Ventricular tachycardia [None]
  - Hypoxia [None]
  - Pulmonary toxicity [None]

NARRATIVE: CASE EVENT DATE: 20150202
